FAERS Safety Report 12929471 (Version 1)
Quarter: 2016Q4

REPORT INFORMATION
  Report Type: Spontaneous
  Country: US (occurrence: US)
  Receive Date: 20161110
  Receipt Date: 20161110
  Transmission Date: 20170207
  Serious: No
  Sender: FDA-Public Use
  Company Number: US-GLAXOSMITHKLINE-US2016GSK165718

PATIENT
  Sex: Female

DRUGS (1)
  1. SUMATRIPTAN SUCCINATE. [Suspect]
     Active Substance: SUMATRIPTAN SUCCINATE
     Indication: PRODUCT USED FOR UNKNOWN INDICATION

REACTIONS (2)
  - Chest discomfort [Unknown]
  - Product substitution issue [Not Recovered/Not Resolved]
